FAERS Safety Report 11658082 (Version 2)
Quarter: 2015Q4

REPORT INFORMATION
  Report Type: Spontaneous
  Country: KR (occurrence: KR)
  Receive Date: 20151024
  Receipt Date: 20151028
  Transmission Date: 20160304
  Serious: Yes (Hospitalization)
  Sender: FDA-Public Use
  Company Number: KR-AMGEN-KORCT2015112075

PATIENT
  Age: 48 Year
  Sex: Female
  Weight: 66 kg

DRUGS (16)
  1. CYCLOPHOSPHAMIDE. [Concomitant]
     Active Substance: CYCLOPHOSPHAMIDE
     Dosage: 129 MG, UNK
     Route: 042
     Dates: start: 20150822, end: 20150822
  2. CYCLOPHOSPHAMIDE. [Concomitant]
     Active Substance: CYCLOPHOSPHAMIDE
     Dosage: 129 MG, UNK
     Route: 042
     Dates: start: 20151003, end: 20151003
  3. G-LASTA [Suspect]
     Active Substance: PEGFILGRASTIM
     Dosage: 6 MG, 1X/3WEEKS
     Route: 058
     Dates: start: 20151004, end: 20151004
  4. DOCETAXEL. [Concomitant]
     Active Substance: DOCETAXEL
     Dosage: 129 MG, UNK
     Route: 042
     Dates: start: 20150822, end: 20150822
  5. DOXORUBICIN [Concomitant]
     Active Substance: DOXORUBICIN
     Dosage: 86 MG, UNK
     Route: 042
     Dates: start: 20150822, end: 20150822
  6. DOXORUBICIN [Concomitant]
     Active Substance: DOXORUBICIN
     Dosage: 86 MG, UNK
     Route: 042
     Dates: start: 20150912, end: 20150912
  7. G-LASTA [Suspect]
     Active Substance: PEGFILGRASTIM
     Indication: FEBRILE NEUTROPENIA
     Dosage: 6 MG, 1X/3WEEKS
     Route: 058
     Dates: start: 20150802, end: 20150802
  8. DOCETAXEL. [Concomitant]
     Active Substance: DOCETAXEL
     Dosage: 129 MG, UNK
     Route: 042
     Dates: start: 20150801, end: 20150801
  9. G-LASTA [Suspect]
     Active Substance: PEGFILGRASTIM
     Dosage: 6 MG, 1X/3WEEKS
     Route: 058
     Dates: start: 20150823, end: 20150823
  10. G-LASTA [Suspect]
     Active Substance: PEGFILGRASTIM
     Dosage: 6 MG, 1X/3WEEKS
     Route: 058
     Dates: start: 20150913, end: 20150913
  11. DOCETAXEL. [Concomitant]
     Active Substance: DOCETAXEL
     Dosage: 129 MG, UNK
     Route: 042
     Dates: start: 20150912, end: 20150912
  12. DOCETAXEL. [Concomitant]
     Active Substance: DOCETAXEL
     Dosage: 129 MG, UNK
     Route: 042
     Dates: start: 20151003, end: 20151003
  13. DOXORUBICIN [Concomitant]
     Active Substance: DOXORUBICIN
     Dosage: 86 MG, UNK
     Route: 042
     Dates: start: 20150801, end: 20150801
  14. CYCLOPHOSPHAMIDE. [Concomitant]
     Active Substance: CYCLOPHOSPHAMIDE
     Dosage: 129 MG, UNK
     Route: 042
     Dates: start: 20150801, end: 20150801
  15. CYCLOPHOSPHAMIDE. [Concomitant]
     Active Substance: CYCLOPHOSPHAMIDE
     Dosage: 129 MG, UNK
     Route: 042
     Dates: start: 20150912, end: 20150912
  16. DOXORUBICIN [Concomitant]
     Active Substance: DOXORUBICIN
     Dosage: 86 MG, UNK
     Route: 042
     Dates: start: 20151003, end: 20151003

REACTIONS (1)
  - Neutropenia [Recovered/Resolved]

NARRATIVE: CASE EVENT DATE: 20151008
